FAERS Safety Report 8340670-9 (Version None)
Quarter: 2012Q2

REPORT INFORMATION
  Report Type: 
  Country: None (occurrence: None)
  Receive Date: 20120507
  Receipt Date: 20120426
  Transmission Date: 20120825
  Serious: Yes (Other)
  Sender: FDA-Public Use
  Company Number: US-ASTRAZENECA-2012SE27757

PATIENT
  Sex: Male

DRUGS (1)
  1. BRILINTA [Suspect]
     Route: 048

REACTIONS (4)
  - OESOPHAGEAL RUPTURE [None]
  - OESOPHAGEAL HAEMORRHAGE [None]
  - COUGH [None]
  - VOMITING [None]
